FAERS Safety Report 24649732 (Version 2)
Quarter: 2025Q3

REPORT INFORMATION
  Report Type: Spontaneous
  Country: US (occurrence: US)
  Receive Date: 20241121
  Receipt Date: 20250803
  Transmission Date: 20251020
  Serious: Yes (Other)
  Sender: ALEXION PHARMACEUTICALS
  Company Number: US-AstraZeneca-CH-00748551A

PATIENT

DRUGS (1)
  1. CALQUENCE [Suspect]
     Active Substance: ACALABRUTINIB

REACTIONS (1)
  - Cutaneous T-cell lymphoma [Unknown]
